FAERS Safety Report 20591625 (Version 2)
Quarter: 2022Q1

REPORT INFORMATION
  Report Type: Spontaneous
  Country: US (occurrence: US)
  Receive Date: 20220314
  Receipt Date: 20220321
  Transmission Date: 20220423
  Serious: Yes (Other)
  Sender: FDA-Public Use
  Company Number: US-PFIZER INC-202200323898

PATIENT
  Age: 92 Year

DRUGS (2)
  1. TOVIAZ [Suspect]
     Active Substance: FESOTERODINE FUMARATE
     Dosage: 8 MG, ALTERNATE DAY
  2. TOVIAZ [Suspect]
     Active Substance: FESOTERODINE FUMARATE
     Dosage: 8 MG

REACTIONS (6)
  - Thrombosis [Unknown]
  - Bladder cancer [Unknown]
  - Hypoacusis [Unknown]
  - Memory impairment [Unknown]
  - Limb discomfort [Recovering/Resolving]
  - Intentional product misuse [Unknown]
